FAERS Safety Report 21651841 (Version 1)
Quarter: 2022Q4

REPORT INFORMATION
  Report Type: Spontaneous
  Country: US (occurrence: US)
  Receive Date: 20221128
  Receipt Date: 20221128
  Transmission Date: 20230113
  Serious: No
  Sender: FDA-Public Use
  Company Number: US-ALKERMES INC.-ALK-2022-005687

PATIENT
  Sex: Male

DRUGS (1)
  1. ARISTADA [Suspect]
     Active Substance: ARIPIPRAZOLE LAUROXIL
     Indication: Schizoaffective disorder bipolar type
     Dosage: 1064 MILLIGRAM, Q2MO
     Route: 030

REACTIONS (5)
  - Incorrect dose administered [Unknown]
  - Wrong technique in device usage process [Unknown]
  - Dyskinesia [Unknown]
  - Off label use [Unknown]
  - Needle issue [Recovered/Resolved]

NARRATIVE: CASE EVENT DATE: 20220106
